FAERS Safety Report 15329587 (Version 1)
Quarter: 2018Q3

REPORT INFORMATION
  Report Type: Spontaneous
  Country: IN (occurrence: IN)
  Receive Date: 20180829
  Receipt Date: 20180829
  Transmission Date: 20181010
  Serious: Yes (Hospitalization)
  Sender: FDA-Public Use
  Company Number: IN-MYLANLABS-2018M1063648

PATIENT
  Age: 60 Year
  Sex: Female

DRUGS (8)
  1. DONEPEZIL. [Suspect]
     Active Substance: DONEPEZIL
     Indication: MEMORY IMPAIRMENT
     Route: 065
     Dates: start: 201603
  2. CLOBAZAM [Concomitant]
     Active Substance: CLOBAZAM
     Indication: SEIZURE
     Route: 065
     Dates: start: 201209
  3. PIRACETAM [Interacting]
     Active Substance: PIRACETAM
     Indication: MEMORY IMPAIRMENT
     Dosage: THRICE A DAY
     Route: 065
     Dates: start: 201603
  4. OXCARBAZEPINE. [Concomitant]
     Active Substance: OXCARBAZEPINE
     Indication: SEIZURE
     Route: 065
     Dates: start: 201310
  5. OLMESARTAN [Concomitant]
     Active Substance: OLMESARTAN
     Indication: HYPERTENSION
     Route: 065
     Dates: start: 201603
  6. CITICOLINE SODIUM [Interacting]
     Active Substance: CITICOLINE SODIUM
     Indication: MEMORY IMPAIRMENT
     Route: 065
     Dates: start: 201603
  7. RISPERIDONE. [Interacting]
     Active Substance: RISPERIDONE
     Indication: SCHIZOPHRENIA
     Dosage: CURRENT DOSE
     Route: 065
     Dates: start: 201505
  8. VALPROATE [Concomitant]
     Active Substance: VALPROIC ACID
     Indication: SEIZURE
     Route: 065

REACTIONS (2)
  - Neuroleptic malignant syndrome [Recovered/Resolved]
  - Drug interaction [Recovered/Resolved]
